FAERS Safety Report 15059611 (Version 1)
Quarter: 2018Q2

REPORT INFORMATION
  Report Type: Spontaneous
  Country: US (occurrence: US)
  Receive Date: 20180625
  Receipt Date: 20180625
  Transmission Date: 20180711
  Serious: Yes (Other)
  Sender: FDA-Public Use
  Company Number: US-SA-2018SA058858

PATIENT
  Age: 49 Year
  Sex: Female
  Weight: 90.3 kg

DRUGS (10)
  1. NEOSAR [Concomitant]
     Active Substance: CYCLOPHOSPHAMIDE
  2. HERCEPTIN [Concomitant]
     Active Substance: TRASTUZUMAB
  3. REMERON [Concomitant]
     Active Substance: MIRTAZAPINE
  4. SYNTHROID [Concomitant]
     Active Substance: LEVOTHYROXINE SODIUM
  5. TAXOTERE [Suspect]
     Active Substance: DOCETAXEL
     Indication: BREAST CANCER
     Dosage: 200 MG
     Route: 051
     Dates: start: 20080326, end: 20080326
  6. TAXOTERE [Suspect]
     Active Substance: DOCETAXEL
     Dosage: 200 DF, 1X
     Route: 051
     Dates: start: 20080626, end: 20080626
  7. ESOMEPRAZOLE [Concomitant]
     Active Substance: ESOMEPRAZOLE
  8. NORVASC [Concomitant]
     Active Substance: AMLODIPINE BESYLATE
  9. KLONOPIN [Concomitant]
     Active Substance: CLONAZEPAM
  10. LIPITOR [Concomitant]
     Active Substance: ATORVASTATIN CALCIUM

REACTIONS (2)
  - Alopecia [Recovering/Resolving]
  - Psychological trauma [Unknown]

NARRATIVE: CASE EVENT DATE: 20081226
